FAERS Safety Report 9787866 (Version 1)
Quarter: 2013Q4

REPORT INFORMATION
  Report Type: Report from Study
  Country: US (occurrence: US)
  Receive Date: 20131230
  Receipt Date: 20131230
  Transmission Date: 20140711
  Serious: Yes (Other)
  Sender: FDA-Public Use
  Company Number: US-ROCHE-1322367

PATIENT
  Sex: Female

DRUGS (7)
  1. TRASTUZUMAB [Suspect]
     Indication: HER-2 POSITIVE BREAST CANCER
     Route: 065
  2. TRASTUZUMAB [Suspect]
     Route: 065
  3. LAPATINIB [Suspect]
     Indication: HER-2 POSITIVE BREAST CANCER
     Dosage: STARTED WITH 1500 MG DAILY, THEN THE DOSE WAS REDUCED TO 1250 MG IN APR 2009 AFTER PROTOCOL AMENDMEN
     Route: 065
  4. FLUOROURACIL [Suspect]
     Indication: HER-2 POSITIVE BREAST CANCER
     Route: 042
  5. EPIRUBICIN HYDROCHLORIDE [Suspect]
     Indication: HER-2 POSITIVE BREAST CANCER
     Route: 042
  6. CYCLOPHOSPHAMIDE [Suspect]
     Indication: HER-2 POSITIVE BREAST CANCER
     Route: 042
  7. PACLITAXEL [Suspect]
     Indication: HER-2 POSITIVE BREAST CANCER
     Route: 042

REACTIONS (25)
  - Diarrhoea [Unknown]
  - Febrile neutropenia [Unknown]
  - Neutropenia [Unknown]
  - Pulmonary embolism [Unknown]
  - Dehydration [Unknown]
  - Vomiting [Unknown]
  - Chest discomfort [Unknown]
  - Deep vein thrombosis [Unknown]
  - Dyspnoea [Unknown]
  - Gastroenteritis [Unknown]
  - Liver function test abnormal [Unknown]
  - Nausea [Unknown]
  - Stomatitis [Unknown]
  - Urinary tract infection [Unknown]
  - Anaemia [Unknown]
  - Upper respiratory tract infection [Unknown]
  - Leukopenia [Unknown]
  - Fatigue [Unknown]
  - Alopecia [Unknown]
  - Rash [Unknown]
  - Neuropathy peripheral [Unknown]
  - Thrombocytopenia [Unknown]
  - Weight decreased [Unknown]
  - Syncope [Unknown]
  - Hypokalaemia [Unknown]
